FAERS Safety Report 7496636-4 (Version None)
Quarter: 2011Q2

REPORT INFORMATION
  Report Type: 
  Country: None (occurrence: None)
  Receive Date: 20110523
  Receipt Date: 20110512
  Transmission Date: 20111010
  Serious: Yes (Hospitalization)
  Sender: FDA-Public Use
  Company Number: A0778118A

PATIENT
  Age: 66 Year
  Sex: Male
  Weight: 115 kg

DRUGS (7)
  1. AVANDIA [Suspect]
     Dosage: 2MG TWICE PER DAY
     Route: 048
     Dates: start: 20060101, end: 20061201
  2. LISINOPRIL [Concomitant]
  3. METOPROLOL SUCCINATE [Concomitant]
  4. AVANDARYL [Suspect]
     Route: 048
  5. LIPITOR [Concomitant]
  6. AVANDAMET [Suspect]
     Route: 048
     Dates: start: 20041110, end: 20070522
  7. ASPIRIN [Concomitant]

REACTIONS (3)
  - MYOCARDIAL INFARCTION [None]
  - MYOCARDIAL ISCHAEMIA [None]
  - CORONARY ARTERY DISEASE [None]
